FAERS Safety Report 22190759 (Version 1)
Quarter: 2023Q2

REPORT INFORMATION
  Report Type: Spontaneous
  Country: CL (occurrence: CL)
  Receive Date: 20230410
  Receipt Date: 20230410
  Transmission Date: 20230721
  Serious: Yes (Death, Hospitalization, Other)
  Sender: FDA-Public Use
  Company Number: CL-BAXTER-2023BAX017599

PATIENT
  Sex: Male
  Weight: 85.5 kg

DRUGS (2)
  1. DIANEAL PD-2 WITH DEXTROSE [Suspect]
     Active Substance: CALCIUM CHLORIDE\DEXTROSE\MAGNESIUM CHLORIDE\SODIUM CHLORIDE\SODIUM LACTATE
     Indication: Peritoneal dialysis
     Dosage: 12 LITRES
     Route: 033
     Dates: start: 20190428, end: 20230331
  2. EXTRANEAL [Suspect]
     Active Substance: CALCIUM CHLORIDE\ICODEXTRIN\MAGNESIUM CHLORIDE\SODIUM CHLORIDE\SODIUM LACTATE
     Indication: Peritoneal dialysis
     Dosage: 1000 ML IN LAST INFUSION
     Route: 033
     Dates: start: 20190428, end: 20230331

REACTIONS (3)
  - Septic shock [Fatal]
  - Diabetic foot [Unknown]
  - Disease complication [Unknown]

NARRATIVE: CASE EVENT DATE: 20230331
